FAERS Safety Report 10004549 (Version 1)
Quarter: 2014Q1

REPORT INFORMATION
  Report Type: Spontaneous
  Country: BR (occurrence: BR)
  Receive Date: 20140312
  Receipt Date: 20140312
  Transmission Date: 20141002
  Serious: Yes (Other)
  Sender: FDA-Public Use
  Company Number: BR-PFIZER INC-2014069399

PATIENT
  Age: 66 Year
  Sex: Female
  Weight: 58 kg

DRUGS (7)
  1. LYRICA [Suspect]
     Indication: SPINAL DISORDER
     Dosage: 75 MG, 2X/DAY
     Route: 048
     Dates: start: 20140212
  2. ARADOIS [Concomitant]
     Indication: BLOOD PRESSURE INCREASED
     Dosage: 1 TABLET (UNSPECIFIED DOSE), 2X/DAY
  3. SIMVASTATIN [Concomitant]
     Indication: BLOOD CHOLESTEROL ABNORMAL
     Dosage: 1 TABLET (UNSPECIFIED DOSE), 1X/DAY
  4. METFORMIN HYDROCHLORIDE [Concomitant]
     Indication: DIABETES MELLITUS
     Dosage: 1 TABLET (UNSPECIFIED DOSE), 3X/DAY
  5. GLIMEPIRIDE [Concomitant]
     Indication: DIABETES MELLITUS
     Dosage: 1 TABLET (UNSPECIFIED DOSE), 1X/DAY
  6. OMEPRAZOLE [Concomitant]
     Indication: GASTRITIS
     Dosage: 1 TABLET (UNSPECIFIED DOSE), 2X/DAY (EVERY 12 HOURS)
  7. VITAMIN D [Concomitant]
     Indication: VITAMIN D DEFICIENCY
     Dosage: 2 DROPS (UNSPECIFIED DOSE), 2X/DAY

REACTIONS (2)
  - Spinal disorder [Unknown]
  - Off label use [Unknown]
